FAERS Safety Report 17635030 (Version 2)
Quarter: 2020Q2

REPORT INFORMATION
  Report Type: Spontaneous
  Country: US (occurrence: US)
  Receive Date: 20200407
  Receipt Date: 20200413
  Transmission Date: 20200713
  Serious: No
  Sender: FDA-Public Use
  Company Number: US-GILEAD-2020-0457777

PATIENT
  Age: 38 Year
  Sex: Male

DRUGS (5)
  1. VITAMINS NOS [Concomitant]
     Active Substance: VITAMINS
  2. SUMATRIPTAN SUCCINATE. [Concomitant]
     Active Substance: SUMATRIPTAN SUCCINATE
  3. VIIBRYD [Concomitant]
     Active Substance: VILAZODONE HYDROCHLORIDE
  4. XANAX [Concomitant]
     Active Substance: ALPRAZOLAM
  5. SOFOSBUVIR;VELPATASVIR [Suspect]
     Active Substance: SOFOSBUVIR\VELPATASVIR
     Indication: CHRONIC HEPATITIS C
     Dosage: 1 DOSAGE FORM, QD
     Route: 048
     Dates: start: 202003

REACTIONS (6)
  - Dry mouth [Not Recovered/Not Resolved]
  - Memory impairment [Not Recovered/Not Resolved]
  - Feeling abnormal [Not Recovered/Not Resolved]
  - Fall [Not Recovered/Not Resolved]
  - Malaise [Not Recovered/Not Resolved]
  - Balance disorder [Not Recovered/Not Resolved]

NARRATIVE: CASE EVENT DATE: 202003
